FAERS Safety Report 6644718-9 (Version None)
Quarter: 2010Q1

REPORT INFORMATION
  Report Type: 
  Country: None (occurrence: None)
  Receive Date: 20100317
  Receipt Date: 20100309
  Transmission Date: 20100710
  Serious: Yes (Hospitalization)
  Sender: FDA-Public Use
  Company Number: 2009-196616-NL

PATIENT
  Age: 26 Year
  Sex: Female
  Weight: 58 kg

DRUGS (3)
  1. NUVARING [Suspect]
     Indication: CONTRACEPTION
     Dosage: ; VAG
     Dates: start: 20090430
  2. CENTELLA ASIATICA [Suspect]
  3. SPIRULINA  /01514001/ [Concomitant]

REACTIONS (9)
  - ANXIETY [None]
  - COITAL BLEEDING [None]
  - INADEQUATE LUBRICATION [None]
  - INCORRECT DRUG ADMINISTRATION DURATION [None]
  - INFLAMMATION [None]
  - METRORRHAGIA [None]
  - PSYCHOSOMATIC DISEASE [None]
  - VIRAL INFECTION [None]
  - WEIGHT INCREASED [None]
